FAERS Safety Report 8259962 (Version 16)
Quarter: 2013Q1

REPORT INFORMATION
  Report Type: Spontaneous
  Country: US (occurrence: US)
  Receive Date: 20111122
  Receipt Date: 20130307
  Transmission Date: 20140127
  Serious: Yes (Hospitalization, Disabling, Other)
  Sender: FDA-Public Use
  Company Number: PHEH2004US014160

PATIENT
  Age: 52 Year
  Sex: Female

DRUGS (74)
  1. AREDIA [Suspect]
     Indication: HYPERCALCAEMIA OF MALIGNANCY
     Dosage: 90 MG, QMO
     Route: 042
     Dates: start: 19980119, end: 20010524
  2. AREDIA [Suspect]
     Indication: PLASMA CELL MYELOMA
  3. ZOMETA [Suspect]
     Indication: HYPERCALCAEMIA OF MALIGNANCY
     Dosage: 4 MG, QMO
     Route: 042
  4. ZOMETA [Suspect]
     Indication: PLASMA CELL MYELOMA
  5. PAXIL [Concomitant]
  6. K-DUR [Concomitant]
  7. MS CONTIN [Concomitant]
  8. VINCRISTINE [Concomitant]
  9. ADRIAMYCIN [Concomitant]
  10. CYTOXAN [Concomitant]
  11. PREDNISONE [Concomitant]
  12. DECADRON [Concomitant]
  13. VALIUM [Concomitant]
     Dosage: 2 MG, UNK
  14. COUMADIN ^BOOTS^ [Concomitant]
  15. TYLENOL W/CODEINE NO. 3 [Concomitant]
  16. AXID [Concomitant]
     Dosage: 150 MG, UNK
  17. MULTIVITAMINS [Concomitant]
  18. DIFLUCAN [Concomitant]
     Dosage: 200 MG, UNK
  19. KYTRIL [Concomitant]
     Dosage: 1 MG, UNK
  20. MELPHALAN [Concomitant]
  21. LASIX [Concomitant]
     Dosage: 20 MG, UNK
  22. ATIVAN [Concomitant]
     Dosage: 0.25 MG, UNK
  23. OXYCONTIN [Concomitant]
     Dosage: 10 MG, UNK
  24. QUININE SULFATE [Concomitant]
     Dosage: 500 MG, BID
  25. PIRAMIDON [Concomitant]
     Dosage: 250 MG, UNK
  26. HYDROCORTISONE [Concomitant]
  27. PLAVIX [Concomitant]
  28. OSCAL [Concomitant]
  29. NITRO PATCH [Concomitant]
  30. NITROQUICK [Concomitant]
  31. FLORINEF [Concomitant]
  32. DOXYCYCLINE [Concomitant]
  33. SIMVASTATIN [Concomitant]
  34. CALCIUM WITH VITAMIN D [Concomitant]
  35. GENTEAL LUBRICANT [Concomitant]
  36. RESTASIS [Concomitant]
  37. PIRAMIDONE [Concomitant]
     Dosage: 250 MG, QD
  38. CORTEF [Concomitant]
     Dosage: 5 MG, BID
  39. POTASSIUM CHLORIDE [Concomitant]
     Dosage: 20 MEQ, QD
  40. CIPRO [Concomitant]
     Dosage: 250 MG, QD
  41. GENTEAL [Concomitant]
     Dosage: 2 GTT, TID
  42. PRIMODIAN [Concomitant]
  43. AUGMENTIN [Concomitant]
  44. ROXICET [Concomitant]
  45. MAG-OX [Concomitant]
  46. PRIMIDONE [Concomitant]
  47. KAYEXALATE [Concomitant]
  48. SEVELAMER [Concomitant]
     Dosage: 1600 MG, TID
  49. PROAMATINE [Concomitant]
     Dosage: 10 MG, BID
  50. DIGOXIN [Concomitant]
     Dosage: 0.063 MG, QOD
  51. CARDIZEM [Concomitant]
     Dosage: 60 MG, RUN IN PHASE
  52. OXYGEN THERAPY [Concomitant]
  53. ASPIRIN ^BAYER^ [Concomitant]
     Dosage: 81 MG, QD
     Route: 048
  54. PREMARIN                                /SCH/ [Concomitant]
     Dosage: 250 MG, QD
     Route: 048
  55. NEPHROCAPS [Concomitant]
  56. MYSOLINE ^ASTRA^ [Concomitant]
  57. SURFAK [Concomitant]
  58. NEUTRA-PHOS [Concomitant]
  59. PROVENTIL INHALER [Concomitant]
  60. ATROVENT [Concomitant]
  61. SOLU-CORTEF [Concomitant]
  62. DIPRIVAN [Concomitant]
  63. PROTONIX ^PHARMACIA^ [Concomitant]
  64. RENA-VITE [Concomitant]
  65. CLEOCIN [Concomitant]
  66. BUPIVACAINE W/EPINEPHRINE [Concomitant]
  67. AMPICILLIN W/SULBACTAM [Concomitant]
  68. FENTANYL [Concomitant]
  69. NEOSTIGMINE [Concomitant]
  70. GLYCOPYRROLATE [Concomitant]
  71. TORADOL [Concomitant]
  72. POTASSIUM ACETATE [Concomitant]
  73. GENTAMICIN SULFATE [Concomitant]
  74. PREVACID [Concomitant]

REACTIONS (134)
  - Osteonecrosis of jaw [Recovering/Resolving]
  - X-ray abnormal [Recovering/Resolving]
  - Bone disorder [Recovering/Resolving]
  - Impaired healing [Recovering/Resolving]
  - Dysgeusia [Recovering/Resolving]
  - Biopsy bone abnormal [Recovering/Resolving]
  - Joint crepitation [Recovering/Resolving]
  - Osteomyelitis [Not Recovered/Not Resolved]
  - Dental alveolar anomaly [Recovering/Resolving]
  - Osteosclerosis [Recovering/Resolving]
  - Edentulous [Recovering/Resolving]
  - Pain in jaw [Recovering/Resolving]
  - Joint dislocation [Recovering/Resolving]
  - Jaw fracture [Recovering/Resolving]
  - Osteolysis [Recovering/Resolving]
  - Soft tissue disorder [Recovering/Resolving]
  - Decreased appetite [Recovering/Resolving]
  - Klebsiella infection [Recovering/Resolving]
  - Dental examination abnormal [Unknown]
  - Swelling face [Recovering/Resolving]
  - Purulent discharge [Unknown]
  - Malnutrition [Unknown]
  - Candida infection [Unknown]
  - Enterococcus test positive [Unknown]
  - Mastication disorder [Unknown]
  - Pain [Recovering/Resolving]
  - Tongue ulceration [Recovering/Resolving]
  - Hypokalaemia [Unknown]
  - Oedema due to cardiac disease [Unknown]
  - Infection [Unknown]
  - Hyperkalaemia [Unknown]
  - Cardiac failure congestive [Unknown]
  - Pulmonary oedema [Unknown]
  - Cardiovascular disorder [Unknown]
  - Catheterisation cardiac [Unknown]
  - Arterial occlusive disease [Unknown]
  - Sepsis [Unknown]
  - Streptococcal sepsis [Unknown]
  - Cardiac arrest [Recovering/Resolving]
  - Spinal compression fracture [Unknown]
  - Pseudomonas infection [Unknown]
  - Cellulitis [Unknown]
  - Pulmonary congestion [Unknown]
  - Pleural effusion [Unknown]
  - Thrombosis in device [Unknown]
  - Peripheral vascular disorder [Unknown]
  - Osteopenia [Unknown]
  - Neuropathy peripheral [Unknown]
  - Thrombocytopenia [Unknown]
  - Renal failure chronic [Unknown]
  - Fanconi syndrome [Unknown]
  - Dysphagia [Unknown]
  - Facial pain [Unknown]
  - Weight decreased [Unknown]
  - Rib fracture [Unknown]
  - Kyphoscoliosis [Unknown]
  - Lymphadenopathy [Unknown]
  - Atelectasis [Unknown]
  - Coagulopathy [Unknown]
  - Myoclonus [Unknown]
  - Hip fracture [Unknown]
  - Cardiac disorder [Unknown]
  - Tricuspid valve incompetence [Unknown]
  - Dilatation ventricular [Unknown]
  - Pulmonary hypertension [Unknown]
  - Addison^s disease [Unknown]
  - Coronary artery disease [Unknown]
  - Cardiomegaly [Unknown]
  - Peripheral arterial occlusive disease [Unknown]
  - Septic shock [Unknown]
  - Hypotension [Unknown]
  - Anaemia of chronic disease [Unknown]
  - Ejection fraction decreased [Unknown]
  - Hyperparathyroidism [Unknown]
  - Pleural fibrosis [Unknown]
  - Atrial fibrillation [Unknown]
  - Extremity necrosis [Unknown]
  - Skin burning sensation [Unknown]
  - Deafness [Unknown]
  - Plasma cell myeloma recurrent [Unknown]
  - Arteriovenous fistula site complication [Unknown]
  - Abscess neck [Unknown]
  - Otitis media chronic [Unknown]
  - Mitral valve incompetence [Unknown]
  - Adrenal insufficiency [Unknown]
  - Hepatic enzyme abnormal [Unknown]
  - Orthostatic hypotension [Unknown]
  - Contusion [Unknown]
  - Skin atrophy [Unknown]
  - Gait disturbance [Unknown]
  - Oral cavity fistula [Unknown]
  - Inflammation [Unknown]
  - Cataract [Unknown]
  - Visual impairment [Unknown]
  - Diplopia [Unknown]
  - Parotitis [Unknown]
  - Kyphosis [Unknown]
  - Aneurysm [Unknown]
  - Ecchymosis [Unknown]
  - Breast haematoma [Unknown]
  - Myocardial infarction [Unknown]
  - Convulsion [Unknown]
  - Mitral valve disease [Unknown]
  - Femur fracture [Unknown]
  - Restrictive pulmonary disease [Unknown]
  - Respiratory acidosis [Unknown]
  - Lung infiltration [Unknown]
  - Cerebral atrophy [Unknown]
  - Cerebral small vessel ischaemic disease [Unknown]
  - Myopathy [Unknown]
  - Hepatic encephalopathy [Unknown]
  - Pruritus [Unknown]
  - Mastoiditis [Unknown]
  - Ulnar nerve injury [Unknown]
  - Hypoxia [Unknown]
  - Breast calcifications [Unknown]
  - Injury [Unknown]
  - Decubitus ulcer [Unknown]
  - Faecal incontinence [Unknown]
  - Lung disorder [Unknown]
  - Cognitive disorder [Unknown]
  - Aortic dilatation [Unknown]
  - Aortic arteriosclerosis [Unknown]
  - Interstitial lung disease [Unknown]
  - Pyrexia [Unknown]
  - Wound [Unknown]
  - Arthralgia [Unknown]
  - Polyarthritis [Unknown]
  - Dyspnoea [Unknown]
  - Hypercapnia [Unknown]
  - Arrhythmia [Unknown]
  - Hypoglycaemia [Unknown]
  - Hepatic failure [Unknown]
  - Confusional state [Unknown]
